FAERS Safety Report 13728889 (Version 1)
Quarter: 2017Q3

REPORT INFORMATION
  Report Type: Report from Study
  Country: US (occurrence: US)
  Receive Date: 20170707
  Receipt Date: 20170707
  Transmission Date: 20171127
  Serious: Yes (Death, Other)
  Sender: FDA-Public Use
  Company Number: US-GILEAD-2017-0281938

PATIENT
  Age: 88 Year
  Sex: Female

DRUGS (11)
  1. PLAVIX [Concomitant]
     Active Substance: CLOPIDOGREL BISULFATE
  2. AMBRISENTAN [Suspect]
     Active Substance: AMBRISENTAN
     Indication: PULMONARY ARTERIAL HYPERTENSION
     Dosage: 5 MG, QD
     Route: 065
     Dates: start: 20071102
  3. FOLIC ACID. [Concomitant]
     Active Substance: FOLIC ACID
  4. LASIX [Concomitant]
     Active Substance: FUROSEMIDE
  5. BONIVA [Concomitant]
     Active Substance: IBANDRONATE SODIUM
  6. COUMADIN [Concomitant]
     Active Substance: WARFARIN SODIUM
  7. LATANOPROST. [Concomitant]
     Active Substance: LATANOPROST
  8. COENZYME Q10 [Concomitant]
     Active Substance: UBIDECARENONE
  9. CARDIZEM [Concomitant]
     Active Substance: DILTIAZEM HYDROCHLORIDE
  10. PROTONIX                           /00661201/ [Concomitant]
     Active Substance: OMEPRAZOLE
  11. SIMBRINZA [Concomitant]
     Active Substance: BRIMONIDINE TARTRATE\BRINZOLAMIDE

REACTIONS (1)
  - Cerebrovascular accident [Fatal]
